FAERS Safety Report 7624071-4 (Version None)
Quarter: 2011Q3

REPORT INFORMATION
  Report Type: 
  Country: None (occurrence: None)
  Receive Date: 20110720
  Receipt Date: 20110711
  Transmission Date: 20111222
  Serious: Yes (Other)
  Sender: FDA-Public Use
  Company Number: PHHY2011US61484

PATIENT
  Age: 31 Year
  Sex: Female

DRUGS (2)
  1. KEPPRA [Suspect]
     Indication: EPILEPSY
     Dosage: 3000 MG, UNK
  2. TRILEPTAL [Suspect]
     Indication: EPILEPSY
     Dosage: 1500 MG, UNK

REACTIONS (2)
  - MATERNAL EXPOSURE DURING PREGNANCY [None]
  - ABORTION SPONTANEOUS [None]
